FAERS Safety Report 20825292 (Version 1)
Quarter: 2022Q2

REPORT INFORMATION
  Report Type: Spontaneous
  Country: JP (occurrence: JP)
  Receive Date: 20220513
  Receipt Date: 20220513
  Transmission Date: 20220721
  Serious: Yes (Other)
  Sender: FDA-Public Use
  Company Number: JP-SAKK-2022SA168354AA

PATIENT
  Age: 65 Year
  Weight: 59 kg

DRUGS (3)
  1. SARCLISA [Suspect]
     Active Substance: ISATUXIMAB-IRFC
     Indication: Plasma cell myeloma
     Dosage: DAILY DOSE: 600 MG
     Route: 041
     Dates: start: 20220426
  2. KYPROLIS [Suspect]
     Active Substance: CARFILZOMIB
     Indication: Plasma cell myeloma
     Dosage: DAILY DOSE: 56 MG
     Route: 065
     Dates: start: 20220426, end: 2022
  3. KYPROLIS [Suspect]
     Active Substance: CARFILZOMIB
     Dosage: DOSAGE INCREASED
     Route: 065
     Dates: start: 2022

REACTIONS (1)
  - Tumour lysis syndrome [Recovered/Resolved]

NARRATIVE: CASE EVENT DATE: 20220501
